FAERS Safety Report 9846791 (Version 2)
Quarter: 2014Q1

REPORT INFORMATION
  Report Type: Spontaneous
  Country: US (occurrence: US)
  Receive Date: 20140127
  Receipt Date: 20140225
  Transmission Date: 20141002
  Serious: Yes (Other)
  Sender: FDA-Public Use
  Company Number: US-TMC-CABO-14003940

PATIENT
  Sex: Female
  Weight: 41.27 kg

DRUGS (1)
  1. COMETRIQ [Suspect]
     Indication: THYROID CANCER
     Dosage: 100 MG, QD
     Route: 048
     Dates: start: 20130919, end: 20140117

REACTIONS (1)
  - Hepatitis [Unknown]
